FAERS Safety Report 11583495 (Version 1)
Quarter: 2015Q3

REPORT INFORMATION
  Report Type: Spontaneous
  Country: US (occurrence: None)
  Receive Date: 20150930
  Receipt Date: 20150930
  Transmission Date: 20151125
  Serious: Yes (Other)
  Sender: FDA-Public Use
  Company Number: None

PATIENT
  Age: 45 Year
  Sex: Female

DRUGS (1)
  1. COPAXONE [Suspect]
     Active Substance: GLATIRAMER ACETATE
     Indication: MULTIPLE SCLEROSIS
     Dosage: 1
     Route: 058
     Dates: start: 20120101, end: 20150929

REACTIONS (6)
  - Hot flush [None]
  - Abdominal pain [None]
  - Throat tightness [None]
  - Pain [None]
  - Heart rate increased [None]
  - Vomiting [None]

NARRATIVE: CASE EVENT DATE: 20150928
